FAERS Safety Report 6512046-8 (Version None)
Quarter: 2009Q4

REPORT INFORMATION
  Report Type: 
  Country: None (occurrence: None)
  Receive Date: 20091222
  Receipt Date: 20090521
  Transmission Date: 20100525
  Serious: No
  Sender: FDA-Public Use
  Company Number: US-ASTRAZENECA-2009UW13082

PATIENT
  Age: 25336 Day
  Sex: Female
  Weight: 95.3 kg

DRUGS (11)
  1. CRESTOR [Suspect]
     Route: 048
     Dates: start: 20090520
  2. XANAX [Concomitant]
  3. LYRICA [Concomitant]
  4. HYDROCODONE [Concomitant]
  5. ULTRAM [Concomitant]
  6. PANITRAN [Concomitant]
  7. FLAX [Concomitant]
  8. ZINC [Concomitant]
  9. MYLANTA [Concomitant]
  10. TUMS [Concomitant]
  11. ZOLOFT [Concomitant]

REACTIONS (1)
  - PAIN [None]
